FAERS Safety Report 14776605 (Version 1)
Quarter: 2018Q2

REPORT INFORMATION
  Report Type: Spontaneous
  Country: CA (occurrence: CA)
  Receive Date: 20180418
  Receipt Date: 20180418
  Transmission Date: 20180711
  Serious: Yes (Other)
  Sender: FDA-Public Use
  Company Number: CA-BAXTER-2018BAX011315

PATIENT

DRUGS (1)
  1. 0.9% SODIUM CHLORIDE INJECTION [Suspect]
     Active Substance: SODIUM CHLORIDE
     Indication: DEVICE PRIMING
     Route: 065

REACTIONS (2)
  - Haemorrhage [Unknown]
  - Device damage [Unknown]

NARRATIVE: CASE EVENT DATE: 20180409
